FAERS Safety Report 6913553-6 (Version None)
Quarter: 2010Q3

REPORT INFORMATION
  Report Type: 
  Country: None (occurrence: None)
  Receive Date: 20100809
  Receipt Date: 20100805
  Transmission Date: 20110219
  Serious: Yes (Hospitalization)
  Sender: FDA-Public Use
  Company Number: FR-SANOFI-AVENTIS-200912861FR

PATIENT
  Age: 37 Year
  Sex: Female

DRUGS (13)
  1. RIFAMPICIN [Suspect]
     Indication: DISSEMINATED TUBERCULOSIS
     Dosage: DOSE UNIT: 300 MG
     Route: 048
     Dates: start: 20090503, end: 20090516
  2. RIFAMPICIN [Suspect]
     Dosage: DOSE UNIT: 300 MG
     Route: 048
     Dates: start: 20090525, end: 20090529
  3. MYAMBUTOL [Suspect]
     Indication: DISSEMINATED TUBERCULOSIS
     Dosage: DOSE UNIT: 400 MG
     Route: 048
     Dates: start: 20090425, end: 20090516
  4. MYAMBUTOL [Suspect]
     Dosage: DOSE UNIT: 400 MG
     Route: 048
     Dates: start: 20090525, end: 20090529
  5. RIMIFON [Concomitant]
     Indication: DISSEMINATED TUBERCULOSIS
     Dosage: DOSE UNIT: 150 MG
     Route: 048
     Dates: start: 20090425, end: 20090516
  6. CLARITHROMYCIN [Concomitant]
     Indication: DISSEMINATED TUBERCULOSIS
     Dates: start: 20090425, end: 20090503
  7. RIFABUTIN [Concomitant]
     Indication: DISSEMINATED TUBERCULOSIS
     Dates: start: 20090425, end: 20090503
  8. SUSTIVA [Concomitant]
     Dosage: DOSE:1 UNIT(S)
     Route: 048
     Dates: start: 20090505, end: 20090516
  9. EMTRICITABINE/TENOFOVIR DISOPROXIL FUMARATE [Concomitant]
     Dosage: DOSE:1 UNIT(S)
     Route: 048
     Dates: start: 20090505, end: 20090516
  10. FUZEON [Concomitant]
     Dosage: DOSE UNIT: 90 MG/ML DOSE:1 UNIT(S)
     Dates: start: 20090505, end: 20090516
  11. SINGULAIR [Concomitant]
     Dates: start: 20090511, end: 20090516
  12. IMOVANE [Concomitant]
     Indication: INSOMNIA
     Dosage: DOSE UNIT: 7.5 MG
     Route: 048
     Dates: start: 20090427, end: 20090516
  13. SULFAMETHOXAZOLE AND TRIMETHOPRIM [Concomitant]
     Dosage: DOSE:1 UNIT(S)
     Route: 048
     Dates: start: 20090425, end: 20090516

REACTIONS (1)
  - CHOLESTASIS [None]
